FAERS Safety Report 4769083-3 (Version None)
Quarter: 2005Q3

REPORT INFORMATION
  Report Type: 
  Country: None (occurrence: None)
  Receive Date: 20050915
  Receipt Date: 20050804
  Transmission Date: 20060218
  Serious: No
  Sender: FDA-Public Use
  Company Number: 2005UW11556

PATIENT
  Age: 10274 Day
  Sex: Female

DRUGS (3)
  1. SEROQUEL [Suspect]
     Route: 048
     Dates: start: 20050706, end: 20050708
  2. SEROQUEL [Suspect]
     Dosage: INCREASED
     Route: 048
     Dates: start: 20050709, end: 20050803
  3. PROZAC [Concomitant]
     Route: 048
     Dates: start: 20050608

REACTIONS (2)
  - ABDOMINAL DISCOMFORT [None]
  - ABDOMINAL DISTENSION [None]
